FAERS Safety Report 5359399-4 (Version None)
Quarter: 2007Q2

REPORT INFORMATION
  Report Type: 
  Country: None (occurrence: None)
  Receive Date: 20070615
  Receipt Date: 20070604
  Transmission Date: 20071010
  Serious: Yes (Other)
  Sender: FDA-Public Use
  Company Number: US-PFIZER INC-2007045971

PATIENT
  Sex: Female

DRUGS (2)
  1. BEXTRA [Suspect]
     Indication: TENDONITIS
  2. BEXTRA [Suspect]
     Indication: ARTHRALGIA

REACTIONS (1)
  - STEVENS-JOHNSON SYNDROME [None]
